FAERS Safety Report 6284526-4 (Version None)
Quarter: 2009Q3

REPORT INFORMATION
  Report Type: 
  Country: None (occurrence: None)
  Receive Date: 20090723
  Receipt Date: 20090715
  Transmission Date: 20100115
  Serious: Yes (Other)
  Sender: FDA-Public Use
  Company Number: 2009AL004632

PATIENT
  Age: 37 Year
  Sex: Female

DRUGS (7)
  1. GABAPENTIN CAPSULES, 400 MG [Suspect]
     Dosage: 400 MG QD PO
     Route: 048
     Dates: end: 20090424
  2. IBUPROFEN ORAL SUSPENSION USP, 100 MG/5 ML (RX) [Suspect]
     Dates: end: 20090424
  3. REBIF [Concomitant]
  4. CYMBALTA [Concomitant]
  5. SYNTHROID [Concomitant]
  6. AMBIEN [Concomitant]
  7. DULCOLAX [Concomitant]

REACTIONS (1)
  - AUTOIMMUNE HEPATITIS [None]
